FAERS Safety Report 21295926 (Version 4)
Quarter: 2023Q1

REPORT INFORMATION
  Report Type: Other
  Country: CA (occurrence: None)
  Receive Date: 20220906
  Receipt Date: 20230315
  Transmission Date: 20230418
  Serious: Yes (Other)
  Sender: FDA-Public Use
  Company Number: CA-ROCHE-2499743

PATIENT
  Sex: Female

DRUGS (5)
  1. OCREVUS [Suspect]
     Active Substance: OCRELIZUMAB
     Indication: Relapsing-remitting multiple sclerosis
     Dosage: 300 MG AT DAY 0 AND 14, THEN 600 MG EVERY 6 MONTH
     Route: 042
     Dates: start: 20180608
  2. EFFEXOR [Concomitant]
     Active Substance: VENLAFAXINE HYDROCHLORIDE
  3. ALTACE [Concomitant]
     Active Substance: RAMIPRIL
  4. INSULIN NOS [Concomitant]
     Active Substance: INSULIN NOS
     Indication: Type 1 diabetes mellitus
  5. LIPITOR [Concomitant]
     Active Substance: ATORVASTATIN CALCIUM
     Route: 065

REACTIONS (11)
  - VIth nerve paralysis [Recovering/Resolving]
  - Sinusitis [Recovered/Resolved]
  - Urinary tract infection [Recovered/Resolved]
  - Viral upper respiratory tract infection [Not Recovered/Not Resolved]
  - COVID-19 [Recovered/Resolved]
  - Diplopia [Recovering/Resolving]
  - SARS-CoV-2 test positive [Unknown]
  - Hypertension [Unknown]
  - Tachycardia [Unknown]
  - Diplopia [Unknown]
  - Burnout syndrome [Unknown]

NARRATIVE: CASE EVENT DATE: 20190101
